FAERS Safety Report 19259098 (Version 1)
Quarter: 2021Q2

REPORT INFORMATION
  Report Type: Report from Study
  Country: None (occurrence: RO)
  Receive Date: 20210514
  Receipt Date: 20210514
  Transmission Date: 20210717
  Serious: Yes (Death)
  Sender: FDA-Public Use
  Company Number: RO-ABBVIE-21K-135-3862400-00

PATIENT
  Age: 76 Year
  Sex: Female

DRUGS (3)
  1. DUODOPA [Suspect]
     Active Substance: CARBIDOPA\LEVODOPA
     Indication: PARKINSON^S DISEASE
     Dosage: DM 5.00, DC 2.40, ED 1.20, NRED 0, DMN 0.00, DCN 0.00, EDN 0.00, NREDN 0.
     Route: 050
     Dates: start: 20120926, end: 20210422
  2. ISICOM [Concomitant]
     Active Substance: CARBIDOPA\LEVODOPA
     Indication: PRODUCT USED FOR UNKNOWN INDICATION
     Route: 048
     Dates: start: 20210422
  3. DUODOPA [Suspect]
     Active Substance: CARBIDOPA\LEVODOPA

REACTIONS (6)
  - Stoma site pain [Recovered/Resolved]
  - Erythema [Recovering/Resolving]
  - Cardio-respiratory arrest [Fatal]
  - Skin plaque [Recovering/Resolving]
  - Stoma site discharge [Recovered/Resolved]
  - Stoma site ulcer [Recovered/Resolved]

NARRATIVE: CASE EVENT DATE: 20210414
